FAERS Safety Report 10978279 (Version 1)
Quarter: 2015Q2

REPORT INFORMATION
  Report Type: Spontaneous
  Country: AR (occurrence: AR)
  Receive Date: 20150402
  Receipt Date: 20150402
  Transmission Date: 20150821
  Serious: Yes (Hospitalization)
  Sender: FDA-Public Use
  Company Number: AR-GALDERMA-AR15001767

PATIENT
  Age: 2 Year
  Sex: Female

DRUGS (1)
  1. MIRVASO [Suspect]
     Active Substance: BRIMONIDINE TARTRATE
     Dosage: 0.33%
     Route: 048

REACTIONS (3)
  - Pallor [Recovered/Resolved]
  - Malaise [Recovered/Resolved]
  - Accidental exposure to product by child [Recovered/Resolved]
